FAERS Safety Report 10651669 (Version 2)
Quarter: 2015Q1

REPORT INFORMATION
  Report Type: Spontaneous
  Country: FR (occurrence: FR)
  Receive Date: 20141215
  Receipt Date: 20150210
  Transmission Date: 20150720
  Serious: Yes (Other)
  Sender: FDA-Public Use
  Company Number: FR-TEVA-527553ISR

PATIENT
  Age: 45 Year
  Sex: Male
  Weight: 72 kg

DRUGS (2)
  1. IRBESARTAN TEVA 300MG [Suspect]
     Active Substance: IRBESARTAN
     Dosage: 1 DOSAGE FORMS DAILY;
     Route: 048
     Dates: start: 201301
  2. BISOPROLOL TEVA 10MG [Suspect]
     Active Substance: BISOPROLOL
     Dosage: 1 DOSAGE FORMS DAILY;
     Route: 048
     Dates: start: 201301

REACTIONS (6)
  - Hypersensitivity [Unknown]
  - Swelling face [Unknown]
  - Local swelling [Unknown]
  - Flour sensitivity [Recovering/Resolving]
  - Skin plaque [Unknown]
  - Eye swelling [Unknown]

NARRATIVE: CASE EVENT DATE: 20141129
